FAERS Safety Report 15120643 (Version 3)
Quarter: 2018Q3

REPORT INFORMATION
  Report Type: Spontaneous
  Country: IT (occurrence: IT)
  Receive Date: 20180709
  Receipt Date: 20180713
  Transmission Date: 20181010
  Serious: Yes (Other)
  Sender: FDA-Public Use
  Company Number: IT-PFIZER INC-2018272282

PATIENT
  Age: 21 Month
  Sex: Male

DRUGS (2)
  1. MEROPENEM. [Suspect]
     Active Substance: MEROPENEM
     Indication: ANTIBIOTIC THERAPY
     Dosage: 100 MG/KG, 1X/DAY (100 MG/KG/DAY, IN THREE DOSES)
     Route: 042
  2. VANCOMYCIN HCL [Suspect]
     Active Substance: VANCOMYCIN HYDROCHLORIDE
     Indication: ANTIBIOTIC THERAPY
     Dosage: 40 MG/KG, 1X/DAY (40 MG/KG/DAY, IN THREE DOSES)
     Route: 042

REACTIONS (2)
  - Leukopenia [Unknown]
  - Neutropenia [Unknown]
